FAERS Safety Report 20291983 (Version 1)
Quarter: 2022Q1

REPORT INFORMATION
  Report Type: Spontaneous
  Country: JP (occurrence: JP)
  Receive Date: 20220104
  Receipt Date: 20220104
  Transmission Date: 20220423
  Serious: Yes (Other)
  Sender: FDA-Public Use
  Company Number: JP-SYMBIO-202100278

PATIENT
  Age: 81 Year
  Sex: Female
  Weight: 49 kg

DRUGS (3)
  1. BENDAMUSTINE HYDROCHLORIDE [Suspect]
     Active Substance: BENDAMUSTINE HYDROCHLORIDE
     Indication: Mantle cell lymphoma
     Dosage: 70 MG/M2 DAILY; (CYCLIC)
     Route: 041
     Dates: start: 20210616, end: 20210617
  2. BENDAMUSTINE HYDROCHLORIDE [Suspect]
     Active Substance: BENDAMUSTINE HYDROCHLORIDE
     Dosage: 70 MG/M2 DAILY; (CYCLIC)
     Route: 041
     Dates: start: 20210715, end: 20210716
  3. RITUXAN [Suspect]
     Active Substance: RITUXIMAB
     Indication: Mantle cell lymphoma
     Dosage: 375 MG/M2 DAILY;
     Route: 041
     Dates: start: 20210714, end: 20210714

REACTIONS (5)
  - Febrile neutropenia [Recovered/Resolved]
  - Cytomegalovirus infection [Recovering/Resolving]
  - Lymphocyte count decreased [Unknown]
  - Underdose [Unknown]
  - Off label use [Unknown]

NARRATIVE: CASE EVENT DATE: 20210624
